FAERS Safety Report 10034456 (Version 1)
Quarter: 2014Q1

REPORT INFORMATION
  Report Type: Spontaneous
  Country: AR (occurrence: AR)
  Receive Date: 20140325
  Receipt Date: 20140325
  Transmission Date: 20141002
  Serious: Yes (Other)
  Sender: FDA-Public Use
  Company Number: AR-ROCHE-1371120

PATIENT
  Age: 77 Year
  Sex: Male

DRUGS (1)
  1. XOLAIR [Suspect]
     Indication: ASTHMA
     Route: 030

REACTIONS (3)
  - Lymphadenopathy [Recovering/Resolving]
  - Dysphonia [Not Recovered/Not Resolved]
  - Incorrect route of drug administration [Unknown]
